FAERS Safety Report 6611778-0 (Version None)
Quarter: 2010Q1

REPORT INFORMATION
  Report Type: 
  Country: None (occurrence: None)
  Receive Date: 20100303
  Receipt Date: 20100218
  Transmission Date: 20100710
  Serious: Yes (Other)
  Sender: FDA-Public Use
  Company Number: US-ROCHE-680503

PATIENT
  Sex: Female
  Weight: 68.9 kg

DRUGS (6)
  1. KLONOPIN [Suspect]
     Indication: POST-TRAUMATIC STRESS DISORDER
     Dosage: FREQUENCY: QAM, STRENGTH 1 MG
     Route: 048
     Dates: start: 20100105
  2. KLONOPIN [Suspect]
     Dosage: STRENGTH: 0.5 MG
     Route: 048
     Dates: start: 20100105
  3. NORCO [Concomitant]
  4. ZOFRAN [Concomitant]
  5. LASIX [Concomitant]
  6. ESTRADERM [Concomitant]

REACTIONS (11)
  - ABNORMAL BEHAVIOUR [None]
  - DRUG INEFFECTIVE [None]
  - DRUG SCREEN NEGATIVE [None]
  - EYE HAEMORRHAGE [None]
  - HEADACHE [None]
  - ILL-DEFINED DISORDER [None]
  - INSOMNIA [None]
  - MALAISE [None]
  - NERVOUSNESS [None]
  - NEURALGIA [None]
  - OEDEMA PERIPHERAL [None]
